FAERS Safety Report 8112301-4 (Version None)
Quarter: 2012Q1

REPORT INFORMATION
  Report Type: 
  Country: None (occurrence: None)
  Receive Date: 20120203
  Receipt Date: 20120203
  Transmission Date: 20120608
  Serious: No
  Sender: FDA-Public Use
  Company Number: None

PATIENT
  Age: 37 Year
  Sex: Male
  Weight: 87.543 kg

DRUGS (1)
  1. MIRTAZAPINE [Suspect]
     Indication: MAJOR DEPRESSION
     Dosage: 7.5MG
     Route: 048
     Dates: start: 20110108, end: 20120129

REACTIONS (8)
  - PANIC ATTACK [None]
  - PRODUCT QUALITY ISSUE [None]
  - PARAESTHESIA [None]
  - MOOD SWINGS [None]
  - PSYCHOSOMATIC DISEASE [None]
  - DRUG INEFFECTIVE [None]
  - MUSCLE DISORDER [None]
  - FEELING ABNORMAL [None]
